FAERS Safety Report 16723956 (Version 1)
Quarter: 2019Q3

REPORT INFORMATION
  Report Type: Spontaneous
  Country: US (occurrence: US)
  Receive Date: 20190821
  Receipt Date: 20190821
  Transmission Date: 20191005
  Serious: Yes (Death, Other)
  Sender: FDA-Public Use
  Company Number: PHEH2019US034443

PATIENT
  Age: 46 Year
  Sex: Female
  Weight: 102 kg

DRUGS (1)
  1. RYDAPT [Suspect]
     Active Substance: MIDOSTAURIN
     Indication: ACUTE MYELOID LEUKAEMIA
     Dosage: 50 MG, BID
     Route: 048
     Dates: start: 20190804, end: 20190806

REACTIONS (12)
  - Colitis [Unknown]
  - Nausea [Fatal]
  - Colitis ischaemic [Fatal]
  - Intestinal ischaemia [Fatal]
  - Ascites [Unknown]
  - Diarrhoea [Fatal]
  - Peritonitis [Fatal]
  - Granuloma [Unknown]
  - Abdominal pain [Fatal]
  - Septic shock [Fatal]
  - Large intestine perforation [Fatal]
  - Enteritis [Unknown]

NARRATIVE: CASE EVENT DATE: 20190805
